FAERS Safety Report 6164453-3 (Version None)
Quarter: 2009Q2

REPORT INFORMATION
  Report Type: 
  Country: None (occurrence: None)
  Receive Date: 20090421
  Receipt Date: 20090406
  Transmission Date: 20091009
  Serious: Yes (Other)
  Sender: FDA-Public Use
  Company Number: 20090444

PATIENT
  Sex: Female
  Weight: 50 kg

DRUGS (3)
  1. OMEPRAZOLE [Suspect]
     Indication: DYSPEPSIA
     Dosage: 20 MG ONCE A DAY, ORAL
     Route: 048
     Dates: start: 20081201
  2. CLARITIN [Concomitant]
  3. SYMBICORT [Concomitant]

REACTIONS (1)
  - PNEUMONIA [None]
